FAERS Safety Report 16904572 (Version 2)
Quarter: 2019Q4

REPORT INFORMATION
  Report Type: Spontaneous
  Country: SE (occurrence: SE)
  Receive Date: 20191010
  Receipt Date: 20191011
  Transmission Date: 20200122
  Serious: Yes (Other)
  Sender: FDA-Public Use
  Company Number: SE-JNJFOC-20190922659

PATIENT
  Age: 60 Year
  Sex: Male

DRUGS (1)
  1. CONCERTA [Suspect]
     Active Substance: METHYLPHENIDATE HYDROCHLORIDE
     Indication: PRODUCT USED FOR UNKNOWN INDICATION
     Dosage: UNK?DRUG START PERIOD-30 (MINUTES)
     Route: 065

REACTIONS (6)
  - Feeling jittery [Recovered/Resolved]
  - Trismus [Recovered/Resolved]
  - Palpitations [Recovered/Resolved]
  - Swollen tongue [Recovered/Resolved]
  - Muscle tightness [Recovered/Resolved]
  - Mouth swelling [Recovered/Resolved]
